FAERS Safety Report 19905295 (Version 1)
Quarter: 2021Q3

REPORT INFORMATION
  Report Type: Spontaneous
  Country: FR (occurrence: FR)
  Receive Date: 20210930
  Receipt Date: 20210930
  Transmission Date: 20211014
  Serious: Yes (Other)
  Sender: FDA-Public Use
  Company Number: FR-SA-2021SA321941

PATIENT
  Age: 63 Year
  Sex: Female

DRUGS (2)
  1. OXALIPLATIN. [Suspect]
     Active Substance: OXALIPLATIN
     Indication: COLON CANCER
     Dosage: UNKNOWN
     Route: 042
     Dates: start: 20200917, end: 20210205
  2. TOMUDEX [RALTITREXED] [Suspect]
     Active Substance: RALTITREXED
     Indication: COLON CANCER
     Dosage: UNKNOWN
     Route: 042
     Dates: start: 20200917, end: 20210205

REACTIONS (1)
  - Hepatic cytolysis [Not Recovered/Not Resolved]

NARRATIVE: CASE EVENT DATE: 20201116
